FAERS Safety Report 6039158-X (Version None)
Quarter: 2009Q1

REPORT INFORMATION
  Report Type: 
  Country: None (occurrence: None)
  Receive Date: 20090115
  Receipt Date: 20090105
  Transmission Date: 20090719
  Serious: Yes (Hospitalization)
  Sender: FDA-Public Use
  Company Number: FR-PFIZER INC-2009152328

PATIENT

DRUGS (8)
  1. AMLOR [Suspect]
     Dosage: 5 MG, 1X/DAY
     Route: 048
     Dates: start: 20080218
  2. KARDEGIC [Concomitant]
  3. CORDARONE [Concomitant]
  4. VENTOLIN [Concomitant]
  5. FLIXOTAIDE [Concomitant]
  6. BURINEX [Concomitant]
  7. MEDIATENSYL [Concomitant]
  8. LASILIX [Concomitant]
     Dosage: 20 MG, 1X/DAY
     Route: 048
     Dates: start: 20080226

REACTIONS (9)
  - CATHETER RELATED COMPLICATION [None]
  - FALL [None]
  - HYPOCHLORAEMIA [None]
  - HYPONATRAEMIA [None]
  - INAPPROPRIATE ANTIDIURETIC HORMONE SECRETION [None]
  - POLYDIPSIA [None]
  - PULMONARY FIBROSIS [None]
  - SPINAL CORD COMPRESSION [None]
  - URINE POTASSIUM DECREASED [None]
